FAERS Safety Report 16993731 (Version 1)
Quarter: 2019Q4

REPORT INFORMATION
  Report Type: Spontaneous
  Country: FR (occurrence: FR)
  Receive Date: 20191105
  Receipt Date: 20191105
  Transmission Date: 20200122
  Serious: Yes (Hospitalization)
  Sender: FDA-Public Use
  Company Number: FR-SA-2019SA300078

PATIENT
  Age: 76 Year
  Sex: Female
  Weight: 46 kg

DRUGS (4)
  1. DULOXETINE HYDROCHLORIDE. [Concomitant]
     Active Substance: DULOXETINE HYDROCHLORIDE
     Indication: DEPRESSION
     Dosage: 60 MG, QD (1-0-0)
     Route: 048
  2. LOXAPAC [LOXAPINE SUCCINATE] [Suspect]
     Active Substance: LOXAPINE SUCCINATE
     Indication: PSYCHOTIC DISORDER
     Dosage: 10 DROP, QD (10 DROPS EVENING + 5 DROPS IN THE DAY IF NECESSARY)
     Route: 048
     Dates: start: 20190919, end: 20191008
  3. MIANSERIN HYDROCHLORIDE [Concomitant]
     Active Substance: MIANSERIN HYDROCHLORIDE
     Indication: DEPRESSION
     Dosage: 90 MG, QD (1-0-2)
     Route: 048
  4. STILNOX [Suspect]
     Active Substance: ZOLPIDEM TARTRATE
     Indication: SLEEP DISORDER
     Dosage: 15 MG, QD 0.5-0-1 (IF NECESSARY)
     Route: 048
     Dates: start: 20190919, end: 20191008

REACTIONS (1)
  - Fall [Recovered/Resolved]

NARRATIVE: CASE EVENT DATE: 20191009
